FAERS Safety Report 7779748-7 (Version None)
Quarter: 2011Q3

REPORT INFORMATION
  Report Type: 
  Country: None (occurrence: None)
  Receive Date: 20110927
  Receipt Date: 20110922
  Transmission Date: 20111222
  Serious: Yes (Other)
  Sender: FDA-Public Use
  Company Number: DE-B.I. PHARMACEUTICALS,INC./RIDGEFIELD-2011-DE-05309DE

PATIENT
  Age: 65 Year
  Sex: Female
  Weight: 120 kg

DRUGS (2)
  1. OXYGEN [Concomitant]
  2. AGGRENOX [Suspect]
     Dosage: 2 ANZ
     Dates: start: 20060101, end: 20110101

REACTIONS (2)
  - FIBROSIS [None]
  - BEDRIDDEN [None]
